FAERS Safety Report 17331465 (Version 2)
Quarter: 2025Q1

REPORT INFORMATION
  Report Type: Other
  Country: CA (occurrence: CA)
  Receive Date: 20200128
  Receipt Date: 20250206
  Transmission Date: 20250409
  Serious: Yes (Hospitalization, Other)
  Sender: INTERCEPT PHARMACEUTICALS
  Company Number: CA-INTERCEPT-PM2019001312

PATIENT
  Sex: Male

DRUGS (3)
  1. OCALIVA [Suspect]
     Active Substance: OBETICHOLIC ACID
     Indication: Primary biliary cholangitis
     Dosage: 5 MG, QD
     Route: 048
     Dates: start: 20170918
  2. URSODIOL [Concomitant]
     Active Substance: URSODIOL
     Indication: Product used for unknown indication
     Dates: start: 2005
  3. URSODIOL [Concomitant]
     Active Substance: URSODIOL

REACTIONS (6)
  - Atrial fibrillation [Unknown]
  - Hepatomegaly [Unknown]
  - Sternal fracture [Not Recovered/Not Resolved]
  - Oedema [Unknown]
  - Solar lentigo [Recovering/Resolving]
  - Pruritus [Not Recovered/Not Resolved]

NARRATIVE: CASE EVENT DATE: 20190101
